FAERS Safety Report 21175660 (Version 4)
Quarter: 2022Q3

REPORT INFORMATION
  Report Type: Spontaneous
  Country: US (occurrence: US)
  Receive Date: 20220805
  Receipt Date: 20220815
  Transmission Date: 20221027
  Serious: No
  Sender: FDA-Public Use
  Company Number: US-ELI_LILLY_AND_COMPANY-US202207012654

PATIENT
  Sex: Female
  Weight: 60.78 kg

DRUGS (5)
  1. TADALAFIL [Suspect]
     Active Substance: TADALAFIL
     Indication: Pulmonary arterial hypertension
     Dosage: UNK UNK, UNKNOWN
     Route: 065
  2. TADALAFIL [Suspect]
     Active Substance: TADALAFIL
     Dosage: 40 MG, UNKNOWN
     Route: 065
  3. REMODULIN [Suspect]
     Active Substance: TREPROSTINIL
     Indication: Pulmonary arterial hypertension
     Dosage: UNK UNK, OTHER (27.5 NG/KG/MIN) CONTINOUS
     Route: 042
     Dates: start: 20220614
  4. ELIQUIS [Concomitant]
     Active Substance: APIXABAN
     Indication: Product used for unknown indication
  5. ADEMPAS [Concomitant]
     Active Substance: RIOCIGUAT
     Indication: Product used for unknown indication
     Dosage: UNK, UNKNOWN
     Route: 065

REACTIONS (14)
  - Mucous stools [Unknown]
  - Catheter site oedema [Unknown]
  - Catheter site erythema [Unknown]
  - Catheter site warmth [Unknown]
  - Catheter site pain [Unknown]
  - Catheter site mass [Unknown]
  - Phlebitis [Unknown]
  - Tenderness [Recovering/Resolving]
  - Joint swelling [Unknown]
  - Pruritus [Unknown]
  - Nausea [Unknown]
  - Dyspnoea [Recovered/Resolved]
  - Oedema peripheral [Recovering/Resolving]
  - Headache [Unknown]
